FAERS Safety Report 20741672 (Version 3)
Quarter: 2022Q2

REPORT INFORMATION
  Report Type: Spontaneous
  Country: US (occurrence: US)
  Receive Date: 20220422
  Receipt Date: 20220620
  Transmission Date: 20220720
  Serious: Yes (Other)
  Sender: FDA-Public Use
  Company Number: US-BRISTOL-MYERS SQUIBB COMPANY-2022-020425

PATIENT
  Age: 62 Year
  Sex: Female

DRUGS (1)
  1. REVLIMID [Suspect]
     Active Substance: LENALIDOMIDE
     Indication: Plasma cell myeloma
     Dosage: ONE CAPSULE BY MOUTH ONCE DAILY FOR 14 DAYS ON AND 7 DAYS OFF
     Route: 048
     Dates: start: 202203

REACTIONS (2)
  - Hordeolum [Recovering/Resolving]
  - Neuropathy peripheral [Unknown]
